FAERS Safety Report 16465032 (Version 1)
Quarter: 2019Q2

REPORT INFORMATION
  Report Type: Spontaneous
  Country: JP (occurrence: JP)
  Receive Date: 20190621
  Receipt Date: 20190621
  Transmission Date: 20190711
  Serious: Yes (Hospitalization)
  Sender: FDA-Public Use
  Company Number: JP-009507513-1906JPN004548

PATIENT
  Age: 34 Year
  Sex: Female

DRUGS (3)
  1. MENOTROPINS [Suspect]
     Active Substance: MENOTROPINS
     Indication: OVULATION INDUCTION
     Dosage: 1950 INTERNATIONAL UNIT
  2. GONADOTROPIN, CHORIONIC [Suspect]
     Active Substance: CHORIOGONADOTROPIN ALFA
     Indication: OVULATION INDUCTION
     Dosage: 1000 INTERNATIONAL UNIT
  3. FOLLITROPIN ALFA [Suspect]
     Active Substance: FOLLITROPIN
     Indication: OVULATION INDUCTION
     Dosage: 1125 INTERNATIONAL UNIT

REACTIONS (9)
  - Ovarian hyperstimulation syndrome [Unknown]
  - Ascites [Unknown]
  - Ovarian enlargement [Unknown]
  - Jugular vein thrombosis [Recovering/Resolving]
  - Multiple pregnancy [Unknown]
  - Haemoconcentration [Unknown]
  - Pyrexia [Unknown]
  - Swelling [Unknown]
  - Pain [Unknown]
